FAERS Safety Report 24628112 (Version 1)
Quarter: 2024Q4

REPORT INFORMATION
  Report Type: Report from Study
  Country: JP (occurrence: JP)
  Receive Date: 20241117
  Receipt Date: 20241117
  Transmission Date: 20250115
  Serious: Yes (Death, Other)
  Sender: ALEXION PHARMACEUTICALS
  Company Number: JP-ASTRAZENECA-240014193_011820_P_1

PATIENT
  Age: 18 Year

DRUGS (12)
  1. KOSELUGO [Suspect]
     Active Substance: SELUMETINIB
     Indication: Neurofibroma
     Dosage: 35 MILLIGRAM, BID
  2. KOSELUGO [Suspect]
     Active Substance: SELUMETINIB
     Dosage: 35 MILLIGRAM, BID
  3. KOSELUGO [Suspect]
     Active Substance: SELUMETINIB
     Dosage: 35 MILLIGRAM, BID
  4. KOSELUGO [Suspect]
     Active Substance: SELUMETINIB
     Dosage: 35 MILLIGRAM, BID
  5. KOSELUGO [Suspect]
     Active Substance: SELUMETINIB
     Dosage: 25 MILLIGRAM, BID
  6. KOSELUGO [Suspect]
     Active Substance: SELUMETINIB
     Dosage: 25 MILLIGRAM, BID
  7. KOSELUGO [Suspect]
     Active Substance: SELUMETINIB
     Dosage: 25 MILLIGRAM, BID
  8. KOSELUGO [Suspect]
     Active Substance: SELUMETINIB
     Dosage: 25 MILLIGRAM, BID
  9. KOSELUGO [Suspect]
     Active Substance: SELUMETINIB
     Indication: Neurofibroma
     Dosage: 40 MILLIGRAM, BID
  10. KOSELUGO [Suspect]
     Active Substance: SELUMETINIB
     Dosage: 40 MILLIGRAM, BID
  11. KOSELUGO [Suspect]
     Active Substance: SELUMETINIB
     Dosage: 40 MILLIGRAM, BID
  12. KOSELUGO [Suspect]
     Active Substance: SELUMETINIB
     Dosage: 40 MILLIGRAM, BID

REACTIONS (4)
  - Malignant neoplasm progression [Fatal]
  - Neurofibromatosis [Fatal]
  - Headache [Recovering/Resolving]
  - Pyrexia [Recovering/Resolving]
